FAERS Safety Report 7339818-4 (Version None)
Quarter: 2011Q1

REPORT INFORMATION
  Report Type: 
  Country: None (occurrence: None)
  Receive Date: 20110304
  Receipt Date: 20110304
  Transmission Date: 20110831
  Serious: Yes (Other)
  Sender: FDA-Public Use
  Company Number: None

PATIENT
  Age: 29 Year
  Sex: Male
  Weight: 90.7194 kg

DRUGS (2)
  1. AMPHETAMINE SALTS 30 MG SANDO [Suspect]
  2. AMPHETAMINE SALTS 30 MG BARR [Suspect]
     Indication: ATTENTION DEFICIT/HYPERACTIVITY DISORDER
     Dosage: 30 MG TWICE A DAY PO
     Route: 048
     Dates: start: 20101214, end: 20110302

REACTIONS (7)
  - DIZZINESS [None]
  - AMNESIA [None]
  - PAIN [None]
  - FEELING HOT [None]
  - ALOPECIA [None]
  - DISCOMFORT [None]
  - HEADACHE [None]
